FAERS Safety Report 5533231-8 (Version None)
Quarter: 2007Q4

REPORT INFORMATION
  Report Type: 
  Country: None (occurrence: None)
  Receive Date: 20071204
  Receipt Date: 20071128
  Transmission Date: 20080405
  Serious: Yes (Hospitalization)
  Sender: FDA-Public Use
  Company Number: A0659753A

PATIENT
  Age: 42 Year
  Sex: Female

DRUGS (4)
  1. LAPATINIB [Suspect]
     Indication: BREAST CANCER
     Dosage: 1500MG PER DAY
     Route: 048
     Dates: start: 20070410
  2. ZOLADEX [Concomitant]
     Dates: start: 20041122
  3. AROMASIN [Concomitant]
     Dates: start: 20050823
  4. DOXY-WOLFF [Concomitant]
     Route: 048
     Dates: start: 20070622, end: 20070623

REACTIONS (5)
  - ABDOMINAL PAIN UPPER [None]
  - FEELING COLD [None]
  - GASTRIC ULCER [None]
  - NAUSEA [None]
  - PYREXIA [None]
